FAERS Safety Report 21950354 (Version 2)
Quarter: 2023Q1

REPORT INFORMATION
  Report Type: Spontaneous
  Country: US (occurrence: US)
  Receive Date: 20230203
  Receipt Date: 20230210
  Transmission Date: 20230418
  Serious: No
  Sender: FDA-Public Use
  Company Number: US-AMGEN-USASP2023012953

PATIENT
  Age: 76 Year
  Sex: Male

DRUGS (4)
  1. NEULASTA [Suspect]
     Active Substance: PEGFILGRASTIM
     Indication: Prophylaxis
     Dosage: 6 MILLIGRAM, QMO
     Route: 065
  2. NEULASTA [Suspect]
     Active Substance: PEGFILGRASTIM
     Dosage: 6 MILLIGRAM, QMO
     Route: 058
  3. KEYTRUDA [Concomitant]
     Active Substance: PEMBROLIZUMAB
     Indication: Lung carcinoma cell type unspecified stage IV
     Dosage: UNK, 30 MINUTE INFUSION
  4. ALIMTA [Concomitant]
     Active Substance: PEMETREXED DISODIUM
     Indication: Lung carcinoma cell type unspecified stage IV
     Dosage: UNK, 10 MINUTE INFUSION

REACTIONS (2)
  - Nausea [Recovered/Resolved]
  - Asthenia [Recovered/Resolved]

NARRATIVE: CASE EVENT DATE: 20230118
